FAERS Safety Report 5175396-6 (Version None)
Quarter: 2006Q4

REPORT INFORMATION
  Report Type: 
  Country: None (occurrence: None)
  Receive Date: 20061215
  Receipt Date: 20061017
  Transmission Date: 20070319
  Serious: Yes (Hospitalization)
  Sender: FDA-Public Use
  Company Number: AU-BRISTOL-MYERS SQUIBB COMPANY-13545041

PATIENT
  Age: 50 Year
  Sex: Female

DRUGS (3)
  1. ETOPOSIDE [Suspect]
     Dates: start: 20040504
  2. IFOSFAMIDE [Suspect]
     Dates: start: 20040504
  3. CYTARABINE [Suspect]
     Dates: start: 20040504

REACTIONS (5)
  - FEBRILE NEUTROPENIA [None]
  - LUNG CONSOLIDATION [None]
  - PAIN [None]
  - PERIANAL ABSCESS [None]
  - PYREXIA [None]
